FAERS Safety Report 9186228 (Version 1)
Quarter: 2013Q1

REPORT INFORMATION
  Report Type: Spontaneous
  Country: US (occurrence: None)
  Receive Date: 20120628
  Receipt Date: 20120628
  Transmission Date: 20140127
  Serious: No
  Sender: FDA-Public Use
  Company Number: PHEH2011US05149

PATIENT
  Age: 77 Year
  Sex: Female

DRUGS (4)
  1. RECLAST [Suspect]
     Dosage: 5 MG , UNK, INTRAVENOUS
     Route: 042
     Dates: start: 20110815
  2. LEVOTHYROXINE (LEVOTHYROXINE) [Concomitant]
  3. VITAMIN D3 (COLECALCIFEROL) [Concomitant]
  4. SYNTHROID (LEVOTHYROXINE SODIUM) [Concomitant]

REACTIONS (9)
  - Renal failure acute [None]
  - Abdominal tenderness [None]
  - Abdominal rigidity [None]
  - Myalgia [None]
  - Arthralgia [None]
  - Dehydration [None]
  - Blood creatinine increased [None]
  - Urine output decreased [None]
  - Glomerular filtration rate decreased [None]
